FAERS Safety Report 5384665-6 (Version None)
Quarter: 2007Q3

REPORT INFORMATION
  Report Type: 
  Country: None (occurrence: None)
  Receive Date: 20070710
  Receipt Date: 20070323
  Transmission Date: 20080115
  Serious: Yes (Disabling)
  Sender: FDA-Public Use
  Company Number: 2007-00669

PATIENT
  Sex: Female

DRUGS (1)
  1. VELCADE [Suspect]
     Indication: MULTIPLE MYELOMA

REACTIONS (2)
  - ABASIA [None]
  - NEUROPATHY PERIPHERAL [None]
